FAERS Safety Report 5857639-6 (Version None)
Quarter: 2008Q3

REPORT INFORMATION
  Report Type: 
  Country: None (occurrence: None)
  Receive Date: 20080825
  Receipt Date: 20080825
  Transmission Date: 20090109
  Serious: No
  Sender: FDA-Public Use
  Company Number: None

PATIENT

DRUGS (1)
  1. CYMBALTA [Suspect]

REACTIONS (9)
  - ABNORMAL BEHAVIOUR [None]
  - DELUSION [None]
  - DRUG WITHDRAWAL SYNDROME [None]
  - ECONOMIC PROBLEM [None]
  - GAMBLING [None]
  - ILLUSION [None]
  - OBSESSIVE THOUGHTS [None]
  - TOBACCO USER [None]
  - UNEMPLOYMENT [None]
